FAERS Safety Report 6387888-2 (Version None)
Quarter: 2009Q3

REPORT INFORMATION
  Report Type: 
  Country: None (occurrence: None)
  Receive Date: 20090930
  Receipt Date: 20090724
  Transmission Date: 20100115
  Serious: No
  Sender: FDA-Public Use
  Company Number: 230018K09CAN

PATIENT
  Age: 30 Year
  Sex: Female

DRUGS (1)
  1. REBIF [Suspect]
     Indication: MARBURG'S VARIANT MULTIPLE SCLEROSIS
     Dosage: 44 MCG, 3 IN 1 WEEKS, SUBCUTANEOUS
     Route: 058
     Dates: start: 20080905, end: 20090201

REACTIONS (10)
  - ASTHENIA [None]
  - ASTHENOPIA [None]
  - BURNING SENSATION [None]
  - CONVULSION [None]
  - FEELING ABNORMAL [None]
  - NAUSEA [None]
  - NEURALGIA [None]
  - OCULOGYRIC CRISIS [None]
  - URINE ABNORMALITY [None]
  - VISUAL IMPAIRMENT [None]
